FAERS Safety Report 14616941 (Version 3)
Quarter: 2019Q3

REPORT INFORMATION
  Report Type: Report from Study
  Country: US (occurrence: US)
  Receive Date: 20180309
  Receipt Date: 20190906
  Transmission Date: 20191004
  Serious: No
  Sender: FDA-Public Use
  Company Number: PHEH2018US009042

PATIENT
  Age: 64 Year
  Sex: Male

DRUGS (1)
  1. COSENTYX [Suspect]
     Active Substance: SECUKINUMAB
     Indication: PSORIASIS
     Dosage: 300 MG, QMO
     Route: 058
     Dates: start: 20171101

REACTIONS (4)
  - Nasal congestion [Not Recovered/Not Resolved]
  - Sinus disorder [Unknown]
  - Impaired healing [Unknown]
  - Hypoacusis [Unknown]

NARRATIVE: CASE EVENT DATE: 20171101
